FAERS Safety Report 21043897 (Version 1)
Quarter: 2022Q3

REPORT INFORMATION
  Report Type: Report from Study
  Country: US (occurrence: US)
  Receive Date: 20220705
  Receipt Date: 20220705
  Transmission Date: 20221027
  Serious: Yes (Hospitalization, Other)
  Sender: FDA-Public Use
  Company Number: US-TAKEDA-US201927321

PATIENT
  Age: 81 Year
  Sex: Female
  Weight: 82 kg

DRUGS (12)
  1. TEDUGLUTIDE [Suspect]
     Active Substance: TEDUGLUTIDE
     Indication: Short-bowel syndrome
     Dosage: 3.06 MILLIGRAM, QD
     Route: 042
     Dates: start: 201903, end: 201908
  2. TEDUGLUTIDE [Suspect]
     Active Substance: TEDUGLUTIDE
     Indication: Short-bowel syndrome
     Dosage: 3.06 MILLIGRAM, QD
     Route: 042
     Dates: start: 201903, end: 201908
  3. TEDUGLUTIDE [Suspect]
     Active Substance: TEDUGLUTIDE
     Indication: Short-bowel syndrome
     Dosage: 3.06 MILLIGRAM, QD
     Route: 042
     Dates: start: 201903, end: 201908
  4. TEDUGLUTIDE [Suspect]
     Active Substance: TEDUGLUTIDE
     Indication: Short-bowel syndrome
     Dosage: 3.06 MILLIGRAM, QD
     Route: 042
     Dates: start: 201903, end: 201908
  5. TEDUGLUTIDE [Suspect]
     Active Substance: TEDUGLUTIDE
     Dosage: 3.06 MILLIGRAM, QD
     Route: 042
     Dates: start: 201908, end: 20191022
  6. TEDUGLUTIDE [Suspect]
     Active Substance: TEDUGLUTIDE
     Dosage: 3.06 MILLIGRAM, QD
     Route: 042
     Dates: start: 201908, end: 20191022
  7. TEDUGLUTIDE [Suspect]
     Active Substance: TEDUGLUTIDE
     Dosage: 3.06 MILLIGRAM, QD
     Route: 042
     Dates: start: 201908, end: 20191022
  8. TEDUGLUTIDE [Suspect]
     Active Substance: TEDUGLUTIDE
     Dosage: 3.06 MILLIGRAM, QD
     Route: 042
     Dates: start: 201908, end: 20191022
  9. VANCOMYCIN [Concomitant]
     Active Substance: VANCOMYCIN
     Indication: Bacteraemia
  10. TOBRAMYCIN [Concomitant]
     Active Substance: TOBRAMYCIN
     Indication: Arthritis bacterial
  11. BACTRIM DS [Concomitant]
     Active Substance: SULFAMETHOXAZOLE\TRIMETHOPRIM
     Indication: Arthritis bacterial
  12. CIPROFLOXACIN [Concomitant]
     Active Substance: CIPROFLOXACIN
     Indication: Arthritis bacterial
     Dosage: UNK

REACTIONS (3)
  - Urinary tract infection [Recovered/Resolved]
  - Fungaemia [Recovered/Resolved]
  - Vomiting [Recovered/Resolved]

NARRATIVE: CASE EVENT DATE: 20190301
